FAERS Safety Report 8073985-2 (Version None)
Quarter: 2012Q1

REPORT INFORMATION
  Report Type: 
  Country: None (occurrence: None)
  Receive Date: 20120126
  Receipt Date: 20120116
  Transmission Date: 20120608
  Serious: Yes (Other)
  Sender: FDA-Public Use
  Company Number: IT-ELI_LILLY_AND_COMPANY-IT201201004669

PATIENT
  Sex: Female

DRUGS (1)
  1. ALIMTA [Suspect]
     Dosage: UNK UNK, UNKNOWN
     Route: 065
     Dates: start: 20120101

REACTIONS (1)
  - THROMBOPHLEBITIS [None]
